FAERS Safety Report 8398654-0 (Version None)
Quarter: 2012Q2

REPORT INFORMATION
  Report Type: 
  Country: None (occurrence: None)
  Receive Date: 20120531
  Receipt Date: 20120522
  Transmission Date: 20120825
  Serious: Yes (Other)
  Sender: FDA-Public Use
  Company Number: BR-ASTRAZENECA-2012SE33484

PATIENT
  Age: 70 Year
  Sex: Female
  Weight: 78 kg

DRUGS (6)
  1. ATENOLOL [Suspect]
     Indication: HYPERTENSION
     Dosage: GENERIC
     Route: 048
     Dates: start: 20100101
  2. NEXIUM [Suspect]
     Indication: GASTRIC ULCER
     Route: 048
     Dates: start: 20090101, end: 20100101
  3. OMEPRAZOLE [Suspect]
     Indication: GASTRIC ULCER
     Route: 048
     Dates: start: 20090101, end: 20100101
  4. OLCADIL [Concomitant]
     Indication: INSOMNIA
     Route: 048
     Dates: start: 20080101
  5. LABYRINTH [Concomitant]
     Indication: LABYRINTHITIS
     Route: 048
     Dates: start: 20090101, end: 20100101
  6. UNKNOWN [Concomitant]
     Indication: VOMITING
     Route: 048
     Dates: start: 20090101, end: 20100101

REACTIONS (4)
  - ABDOMINAL ADHESIONS [None]
  - PHOBIA [None]
  - HYPERTENSION [None]
  - DEPRESSION [None]
